FAERS Safety Report 5243371-9 (Version None)
Quarter: 2007Q1

REPORT INFORMATION
  Report Type: 
  Country: None (occurrence: None)
  Receive Date: 20061201
  Receipt Date: 20060818
  Transmission Date: 20070707
  Serious: No
  Sender: FDA-Public Use
  Company Number: 2006PV019743

PATIENT
  Age: 60 Year
  Sex: Male
  Weight: 96.6162 kg

DRUGS (10)
  1. BYETTA [Suspect]
     Indication: DIABETES MELLITUS NON-INSULIN-DEPENDENT
     Dosage: SEE IMAGE
     Route: 058
     Dates: start: 20060301, end: 20060601
  2. BYETTA [Suspect]
     Indication: DIABETES MELLITUS NON-INSULIN-DEPENDENT
     Dosage: SEE IMAGE
     Route: 058
     Dates: start: 20060601
  3. METFORMIN [Concomitant]
  4. GLIPIZIDE [Concomitant]
  5. GLIMEPIRIDE [Concomitant]
  6. AVANDIA [Concomitant]
  7. TRICOR [Concomitant]
  8. ZOCOR [Concomitant]
  9. ASPIRIN [Concomitant]
  10. FISH OIL [Concomitant]

REACTIONS (4)
  - CHILLS [None]
  - KIDNEY INFECTION [None]
  - PYREXIA [None]
  - WEIGHT DECREASED [None]
